FAERS Safety Report 19246756 (Version 4)
Quarter: 2021Q3

REPORT INFORMATION
  Report Type: Spontaneous
  Country: US (occurrence: US)
  Receive Date: 20210512
  Receipt Date: 20210922
  Transmission Date: 20211014
  Serious: Yes (Hospitalization, Other)
  Sender: FDA-Public Use
  Company Number: US-SUN PHARMACEUTICAL INDUSTRIES LTD-2021R1-291125

PATIENT
  Sex: Female
  Weight: 82.54 kg

DRUGS (8)
  1. EPOPROSTENOL. [Suspect]
     Active Substance: EPOPROSTENOL
     Dosage: 70 NG/KG/MIN, CONTINUOUS
     Route: 065
     Dates: start: 20210323
  2. EPOPROSTENOL. [Suspect]
     Active Substance: EPOPROSTENOL
     Dosage: 60 NG/KG/MIN, CONTINUOUS
     Route: 042
     Dates: start: 20210323
  3. AMBRISENTAN [Concomitant]
     Active Substance: AMBRISENTAN
     Indication: PRODUCT USED FOR UNKNOWN INDICATION
     Route: 065
  4. EPOPROSTENOL. [Suspect]
     Active Substance: EPOPROSTENOL
     Indication: PULMONARY ARTERIAL HYPERTENSION
     Dosage: 60 NG/KG/MIN
     Route: 042
     Dates: start: 20210323
  5. EPOPROSTENOL. [Suspect]
     Active Substance: EPOPROSTENOL
     Dosage: 67 NG/KG/MIN, CONTINUOUS
     Route: 042
     Dates: start: 20210323
  6. EPOPROSTENOL. [Suspect]
     Active Substance: EPOPROSTENOL
     Dosage: 67 NG/KG/MIN, CONTINUOUS
     Route: 042
     Dates: start: 20210323
  7. EPOPROSTENOL. [Suspect]
     Active Substance: EPOPROSTENOL
     Dosage: 70 NG/KG/MIN, CONTINUOUS
     Route: 065
     Dates: start: 20210323, end: 2021
  8. REVATIO [Concomitant]
     Active Substance: SILDENAFIL CITRATE
     Indication: PRODUCT USED FOR UNKNOWN INDICATION
     Dosage: UNK
     Route: 065

REACTIONS (16)
  - Diabetes mellitus [Unknown]
  - Palpitations [Unknown]
  - Nausea [Unknown]
  - Dyspnoea [Unknown]
  - Infection [Unknown]
  - Fluid overload [Unknown]
  - Abdominal discomfort [Unknown]
  - Diarrhoea [Unknown]
  - Chest pain [Unknown]
  - Anaemia [Unknown]
  - Fluid retention [Unknown]
  - Bacterial infection [Unknown]
  - Oxygen saturation decreased [Unknown]
  - Cardiac failure [Unknown]
  - Dizziness [Unknown]
  - Cough [Unknown]
